FAERS Safety Report 5782615-1 (Version None)
Quarter: 2008Q2

REPORT INFORMATION
  Report Type: 
  Country: None (occurrence: None)
  Receive Date: 20080624
  Receipt Date: 20080616
  Transmission Date: 20081010
  Serious: Yes (Other)
  Sender: FDA-Public Use
  Company Number: US-ABBOTT-08P-163-0446686-00

PATIENT
  Sex: Male
  Weight: 73.548 kg

DRUGS (22)
  1. HUMIRA [Suspect]
     Indication: PSORIATIC ARTHROPATHY
     Route: 058
     Dates: start: 20071101, end: 20080401
  2. HUMIRA [Suspect]
     Route: 058
     Dates: start: 20080615
  3. LISINOPRIL [Concomitant]
     Indication: HYPERTENSION
     Route: 048
  4. METHOTREXATE [Concomitant]
     Indication: PSORIATIC ARTHROPATHY
  5. PREDNISONE TAB [Concomitant]
     Indication: ARTHRITIS
  6. AMLODIPINE [Concomitant]
     Indication: HYPERTENSION
  7. ATENOLOL [Concomitant]
     Indication: SUPRAVENTRICULAR EXTRASYSTOLES
     Dosage: HALF OF A HALF OF 25 MG
  8. DIETHYL-STILBESTROL TAB [Concomitant]
     Indication: PROSTATE CANCER
     Dosage: 1-2 MG
  9. ASPIRIN [Concomitant]
     Indication: COAGULOPATHY
  10. PREVACID OMETRAZOLE [Concomitant]
     Indication: PROPHYLAXIS AGAINST GASTROINTESTINAL ULCER
  11. MORPHINE [Concomitant]
     Indication: PAIN
  12. SENNAC [Concomitant]
     Indication: DRUG USE FOR UNKNOWN INDICATION
  13. DOCUSATE [Concomitant]
     Indication: CONSTIPATION PROPHYLAXIS
  14. SIMVIASTATIN [Concomitant]
     Indication: BLOOD CHOLESTEROL
  15. TOLTERODINE TARTRATE [Concomitant]
     Indication: HYPERTONIC BLADDER
     Dosage: 2MG IN MORNING 1 MG IN THE AFTERNOON
  16. FOLIC ACID [Concomitant]
     Indication: DRUG USE FOR UNKNOWN INDICATION
  17. OYSTER SHELL CALCIUM WITH VITAMIN D [Concomitant]
     Indication: DRUG USE FOR UNKNOWN INDICATION
  18. VALIUM [Concomitant]
     Indication: HYPERTONIC BLADDER
  19. VALIUM [Concomitant]
     Indication: MUSCLE SPASMS
  20. BUPROPION HCL [Concomitant]
     Indication: DRUG USE FOR UNKNOWN INDICATION
  21. ZOLPIDEM TARTRATE [Concomitant]
     Indication: INSOMNIA
  22. LORAZEPAM [Concomitant]
     Indication: POST-TRAUMATIC STRESS DISORDER

REACTIONS (4)
  - DERMATITIS BULLOUS [None]
  - HERNIA OBSTRUCTIVE [None]
  - PEMPHIGOID [None]
  - PHARYNGOLARYNGEAL PAIN [None]
